FAERS Safety Report 10710860 (Version 2)
Quarter: 2015Q1

REPORT INFORMATION
  Report Type: Spontaneous
  Country: CA (occurrence: CA)
  Receive Date: 20150114
  Receipt Date: 20150122
  Transmission Date: 20150721
  Serious: Yes (Hospitalization)
  Sender: FDA-Public Use
  Company Number: CA-BAXTER-2014BAX077570

PATIENT
  Age: 36 Year
  Sex: Male

DRUGS (2)
  1. DIANEAL W/ DEXTROSE 2.5% [Suspect]
     Active Substance: CALCIUM CHLORIDE\DEXTROSE\MAGNESIUM CHLORIDE\SODIUM CHLORIDE\SODIUM LACTATE
     Indication: PERITONEAL DIALYSIS
     Route: 033
     Dates: start: 201411
  2. EXTRANEAL [Suspect]
     Active Substance: CALCIUM CHLORIDE\ICODEXTRIN\MAGNESIUM CHLORIDE\SODIUM CHLORIDE\SODIUM LACTATE
     Indication: PERITONEAL DIALYSIS
     Route: 033
     Dates: start: 201411

REACTIONS (3)
  - Peritonitis [Recovering/Resolving]
  - Impaired healing [Unknown]
  - Influenza [Unknown]

NARRATIVE: CASE EVENT DATE: 20150103
